FAERS Safety Report 11608324 (Version 1)
Quarter: 2015Q4

REPORT INFORMATION
  Report Type: Spontaneous
  Country: DE (occurrence: DE)
  Receive Date: 20151007
  Receipt Date: 20151007
  Transmission Date: 20160304
  Serious: Yes (Hospitalization)
  Sender: FDA-Public Use
  Company Number: DE-BRISTOL-MYERS SQUIBB COMPANY-BMS-2015-065815

PATIENT
  Age: 28 Year
  Sex: Female

DRUGS (16)
  1. SOLIAN [Suspect]
     Active Substance: AMISULPRIDE
     Dosage: 600 MG, QD
     Route: 048
     Dates: start: 20140627, end: 20140707
  2. SERTRALIN STADA [Suspect]
     Active Substance: SERTRALINE HYDROCHLORIDE
     Indication: SCHIZOAFFECTIVE DISORDER
     Dosage: 25 MG, QD
     Route: 065
     Dates: start: 20140710, end: 20140723
  3. ABILIFY [Suspect]
     Active Substance: ARIPIPRAZOLE
     Dosage: 10 MG, QD
     Route: 065
     Dates: start: 20140620
  4. ABILIFY [Suspect]
     Active Substance: ARIPIPRAZOLE
     Dosage: 15 MG, QD
     Route: 065
     Dates: start: 20140621, end: 20140622
  5. LYOGEN /00000601/ [Suspect]
     Active Substance: FLUPHENAZINE
     Indication: SCHIZOAFFECTIVE DISORDER
     Dosage: 3 MG, QD
     Route: 048
     Dates: start: 20140708
  6. ABILIFY [Suspect]
     Active Substance: ARIPIPRAZOLE
     Dosage: 20 MG, QD
     Route: 065
     Dates: start: 20140623, end: 20140624
  7. LYOGEN                             /00000601/ [Suspect]
     Active Substance: FLUPHENAZINE
     Dosage: 9 MG, QD
     Route: 048
     Dates: start: 20140728
  8. ABILIFY [Suspect]
     Active Substance: ARIPIPRAZOLE
     Dosage: UNK UNK, QD
     Route: 065
     Dates: start: 20140629
  9. SOLIAN [Suspect]
     Active Substance: AMISULPRIDE
     Dosage: UNK
     Route: 048
     Dates: start: 20140709
  10. LYOGEN                             /00000601/ [Suspect]
     Active Substance: FLUPHENAZINE
     Dosage: 6 MG, QD
     Route: 048
     Dates: start: 20140709, end: 20140727
  11. ABILIFY [Suspect]
     Active Substance: ARIPIPRAZOLE
     Indication: SCHIZOAFFECTIVE DISORDER
     Dosage: 5 MG, QD
     Route: 065
     Dates: start: 20140611, end: 20140619
  12. SOLIAN [Suspect]
     Active Substance: AMISULPRIDE
     Indication: SCHIZOAFFECTIVE DISORDER
     Dosage: 200 G, QD
     Route: 048
     Dates: start: 20140626
  13. SERTRALIN STADA [Suspect]
     Active Substance: SERTRALINE HYDROCHLORIDE
     Dosage: 75 MG, UNK
     Route: 065
     Dates: start: 20140729
  14. AKINETON [Concomitant]
     Active Substance: BIPERIDEN HYDROCHLORIDE
     Indication: MUSCULOSKELETAL STIFFNESS
     Dosage: 4 MG, QD
     Route: 065
     Dates: start: 20140711, end: 20140714
  15. AKINETON [Concomitant]
     Active Substance: BIPERIDEN HYDROCHLORIDE
     Dosage: 6 MG, QD
     Route: 065
     Dates: start: 20140715
  16. ABILIFY [Suspect]
     Active Substance: ARIPIPRAZOLE
     Dosage: 30 MG, QD
     Route: 065
     Dates: start: 20140625, end: 20140626

REACTIONS (3)
  - Constipation [Recovered/Resolved]
  - Blood prolactin increased [Recovering/Resolving]
  - Flatulence [Recovered/Resolved]

NARRATIVE: CASE EVENT DATE: 20140612
